FAERS Safety Report 15420843 (Version 2)
Quarter: 2018Q4

REPORT INFORMATION
  Report Type: Spontaneous
  Country: CN (occurrence: CN)
  Receive Date: 20180924
  Receipt Date: 20181102
  Transmission Date: 20190204
  Serious: Yes (Life-Threatening, Hospitalization)
  Sender: FDA-Public Use
  Company Number: CN-ABBVIE-18P-035-2496478-00

PATIENT
  Age: 28 Year
  Sex: Male

DRUGS (2)
  1. SEVOFLURANE. [Suspect]
     Active Substance: SEVOFLURANE
     Indication: INSOMNIA
     Dosage: 3 TO 5 ML
     Route: 055
  2. SEVOFLURANE. [Suspect]
     Active Substance: SEVOFLURANE
     Dosage: 6 TO 8 ML
     Route: 055

REACTIONS (5)
  - Fall [Recovered/Resolved]
  - Pneumonia aspiration [Recovered/Resolved]
  - Drug dependence [Recovered/Resolved]
  - Occupational exposure to product [Recovered/Resolved]
  - Haematoma [Recovered/Resolved]
